FAERS Safety Report 16662271 (Version 2)
Quarter: 2020Q1

REPORT INFORMATION
  Report Type: Report from Study
  Country: US (occurrence: US)
  Receive Date: 20190802
  Receipt Date: 20200129
  Transmission Date: 20200409
  Serious: No
  Sender: FDA-Public Use
  Company Number: US-EXELIXIS-CABO-19018334

PATIENT
  Age: 59 Year
  Sex: Female

DRUGS (1)
  1. CABOMETYX [Suspect]
     Active Substance: CABOZANTINIB S-MALATE
     Indication: METASTASIS
     Dosage: UNK
     Dates: start: 20190108

REACTIONS (8)
  - Off label use [Unknown]
  - Dysphagia [Unknown]
  - Alopecia [Unknown]
  - Fatigue [Unknown]
  - Dysphonia [Unknown]
  - Stomatitis [Not Recovered/Not Resolved]
  - Dyspnoea [Unknown]
  - Sensitive skin [Unknown]

NARRATIVE: CASE EVENT DATE: 201901
